FAERS Safety Report 12127547 (Version 1)
Quarter: 2016Q1

REPORT INFORMATION
  Report Type: Spontaneous
  Country: HK (occurrence: HK)
  Receive Date: 20160229
  Receipt Date: 20160229
  Transmission Date: 20160526
  Serious: Yes (Other)
  Sender: FDA-Public Use
  Company Number: HK-CELGENE-HKG-2016023789

PATIENT

DRUGS (1)
  1. AZACITIDINE INJECTABLE [Suspect]
     Active Substance: AZACITIDINE
     Indication: PRODUCT USED FOR UNKNOWN INDICATION
     Dosage: 10.7143 MILLIGRAM
     Route: 065

REACTIONS (2)
  - Chronic graft versus host disease [Unknown]
  - Acute graft versus host disease [Unknown]
